FAERS Safety Report 25303750 (Version 1)
Quarter: 2025Q2

REPORT INFORMATION
  Report Type: Report from Study
  Country: US (occurrence: US)
  Receive Date: 20250513
  Receipt Date: 20250513
  Transmission Date: 20250716
  Serious: Yes (Other)
  Sender: VELOXIS PHARMACEUTICALS
  Company Number: US-VELOXIS PHARMACEUTICALS, INC.-2025-VEL-00192

PATIENT

DRUGS (3)
  1. ENVARSUS XR [Suspect]
     Active Substance: TACROLIMUS
     Indication: Lung transplant
  2. MYCOPHENOLIC ACID [Suspect]
     Active Substance: MYCOPHENOLIC ACID
     Indication: Lung transplant
  3. PREDNISONE [Suspect]
     Active Substance: PREDNISONE
     Indication: Lung transplant

REACTIONS (5)
  - Lung transplant rejection [Unknown]
  - Lung transplant rejection [Unknown]
  - Lung transplant rejection [Unknown]
  - Complications of transplanted lung [Unknown]
  - Chronic kidney disease [Unknown]
